FAERS Safety Report 25379386 (Version 1)
Quarter: 2025Q2

REPORT INFORMATION
  Report Type: Spontaneous
  Country: JP (occurrence: JP)
  Receive Date: 20250530
  Receipt Date: 20250530
  Transmission Date: 20250717
  Serious: Yes (Other)
  Sender: RANBAXY
  Company Number: JP-SUN PHARMACEUTICAL INDUSTRIES LTD-2025R1-503153

PATIENT
  Age: 27 Year
  Sex: Male

DRUGS (1)
  1. PREDNISONE [Suspect]
     Active Substance: PREDNISONE
     Indication: Behcet^s syndrome
     Dosage: 0.5 MILLIGRAM/KILOGRAM, QD
     Route: 048

REACTIONS (3)
  - Therapeutic response decreased [Unknown]
  - Disease recurrence [Unknown]
  - Penile dermatitis [Unknown]
